FAERS Safety Report 10551122 (Version 2)
Quarter: 2014Q4

REPORT INFORMATION
  Report Type: Spontaneous
  Country: US (occurrence: US)
  Receive Date: 20141029
  Receipt Date: 20141112
  Transmission Date: 20150529
  Serious: Yes (Hospitalization, Other)
  Sender: FDA-Public Use
  Company Number: US-SHIRE-US201407291

PATIENT
  Age: 14 Year
  Sex: Male
  Weight: 102.95 kg

DRUGS (4)
  1. ZYRTEC [Concomitant]
     Active Substance: CETIRIZINE HYDROCHLORIDE
     Indication: PRODUCT USED FOR UNKNOWN INDICATION
     Dosage: 10 MG, AS REQ^D
     Route: 048
  2. PROVENTIL HFA                      /00139501/ [Concomitant]
     Indication: ASTHMA
     Dosage: 2 PUFFS, AS REQ^D (Q 3-4 HOURS PRN)
     Route: 055
  3. VYVANSE [Suspect]
     Active Substance: LISDEXAMFETAMINE DIMESYLATE
     Indication: ATTENTION DEFICIT/HYPERACTIVITY DISORDER
     Dosage: 30 MG, 1X/DAY:QD (Q AM)
     Route: 048
     Dates: start: 20140925, end: 20141015
  4. FLONASE                            /00908302/ [Concomitant]
     Indication: SEASONAL ALLERGY
     Dosage: 2 SPRAYS EACH NOSTRIL, AS REQ^D (DURING SEASON)
     Route: 045

REACTIONS (2)
  - Blood creatinine increased [Recovering/Resolving]
  - Seizure [Recovered/Resolved]

NARRATIVE: CASE EVENT DATE: 20141015
